FAERS Safety Report 15129165 (Version 5)
Quarter: 2023Q1

REPORT INFORMATION
  Report Type: Report from Study
  Country: US (occurrence: US)
  Receive Date: 20180711
  Receipt Date: 20230217
  Transmission Date: 20230418
  Serious: No
  Sender: FDA-Public Use
  Company Number: US-PFIZER INC-2016242694

PATIENT
  Sex: Male

DRUGS (6)
  1. LYRICA [Suspect]
     Active Substance: PREGABALIN
     Indication: Back pain
     Dosage: 200 MG, 3X/DAY (1 CAPSULE TID) REGIMEN DOSE UNIT: MILLIGRAM
     Route: 048
  2. LYRICA [Suspect]
     Active Substance: PREGABALIN
     Indication: Pain
  3. LYRICA [Suspect]
     Active Substance: PREGABALIN
     Indication: Polyneuropathy
  4. LYRICA [Suspect]
     Active Substance: PREGABALIN
     Indication: Pain in extremity
  5. LYRICA [Suspect]
     Active Substance: PREGABALIN
     Indication: Neuralgia
  6. LYRICA [Suspect]
     Active Substance: PREGABALIN
     Indication: Lumbar radiculopathy

REACTIONS (4)
  - Gait inability [Unknown]
  - Gait disturbance [Unknown]
  - Pain [Unknown]
  - Drug intolerance [Unknown]
